FAERS Safety Report 5893210-8 (Version None)
Quarter: 2008Q3

REPORT INFORMATION
  Report Type: 
  Country: None (occurrence: None)
  Receive Date: 20080923
  Receipt Date: 20071102
  Transmission Date: 20090109
  Serious: No
  Sender: FDA-Public Use
  Company Number: US-ASTRAZENECA-2007UW19128

PATIENT
  Age: 52 Year
  Sex: Female
  Weight: 68 kg

DRUGS (5)
  1. SEROQUEL [Suspect]
     Indication: BIPOLAR DISORDER
     Dosage: 1-100MG AND 2-25 MG TAB
     Route: 048
  2. CYMBALTA [Concomitant]
  3. LAMICTAL [Concomitant]
  4. ATIVAN [Concomitant]
  5. KLONOPIN [Concomitant]

REACTIONS (3)
  - DRUG INEFFECTIVE [None]
  - MANIA [None]
  - POOR QUALITY SLEEP [None]
